FAERS Safety Report 8419320 (Version 8)
Quarter: 2014Q1

REPORT INFORMATION
  Report Type: Spontaneous
  Country: GB (occurrence: GB)
  Receive Date: 20120221
  Receipt Date: 20140312
  Transmission Date: 20141002
  Serious: Yes (Death, Hospitalization, Other)
  Sender: FDA-Public Use
  Company Number: PHFR2012GB000487

PATIENT
  Age: 62 Year
  Sex: Male

DRUGS (6)
  1. CLOZARIL [Suspect]
     Indication: SCHIZOPHRENIA
     Dosage: UNK UKN, UNK
     Route: 048
     Dates: start: 19921123, end: 20111229
  2. CLOZARIL [Suspect]
     Dosage: 200 MG, DAILY
     Route: 048
  3. CLOZARIL [Suspect]
     Dosage: 175 MG, UNK
     Route: 048
     Dates: end: 20140204
  4. FOLIC ACID [Concomitant]
     Dosage: 5 MG, DAILY
     Route: 048
  5. OMEPRAZOLE [Concomitant]
     Dosage: 40 MG, DAILY
     Route: 048
  6. HYDROXOCOBALAMIN [Concomitant]
     Dosage: UNK UKN, UNK
     Route: 058

REACTIONS (8)
  - Gastrointestinal carcinoma [Fatal]
  - Gastric cancer [Fatal]
  - Oesophageal cancer metastatic [Fatal]
  - Dysphagia [Not Recovered/Not Resolved]
  - Platelet count increased [Not Recovered/Not Resolved]
  - Malaise [Unknown]
  - White blood cell count increased [Unknown]
  - Neutrophil count increased [Unknown]
